FAERS Safety Report 5509223-1 (Version None)
Quarter: 2007Q4

REPORT INFORMATION
  Report Type: 
  Country: None (occurrence: None)
  Receive Date: 20071107
  Receipt Date: 20071017
  Transmission Date: 20080405
  Serious: No
  Sender: FDA-Public Use
  Company Number: US-BOEHRINGER INGELHEIM PHARMACEUTICALS, INC.-2007-BP-21969BP

PATIENT
  Sex: Male

DRUGS (6)
  1. CLONIDINE HCL [Suspect]
     Indication: HYPERTENSION
     Route: 048
  2. ATENOLOL [Concomitant]
  3. ZETIA [Concomitant]
  4. ZOCOR [Concomitant]
  5. DIOVAN [Concomitant]
  6. TEKTURNA [Concomitant]

REACTIONS (3)
  - BLOOD PRESSURE INADEQUATELY CONTROLLED [None]
  - DRUG INEFFECTIVE [None]
  - HYPOTENSION [None]
